FAERS Safety Report 9149611 (Version 1)
Quarter: 2013Q1

REPORT INFORMATION
  Report Type: Spontaneous
  Country: US (occurrence: US)
  Receive Date: 20130308
  Receipt Date: 20130308
  Transmission Date: 20140127
  Serious: No
  Sender: FDA-Public Use
  Company Number: US-ENDO PHARMACEUTICALS INC.-OPCR20120291

PATIENT
  Sex: Female

DRUGS (5)
  1. OPANA ER [Suspect]
     Indication: BACK PAIN
     Route: 048
     Dates: start: 2012
  2. OPANA ER [Suspect]
     Indication: BACK DISORDER
  3. OMEPRAZOLE [Concomitant]
     Indication: GASTROINTESTINAL ULCER
     Route: 048
  4. OPANA ER [Concomitant]
     Indication: BACK PAIN
     Route: 048
     Dates: start: 2006, end: 2012
  5. OPANA ER [Concomitant]
     Indication: BACK DISORDER

REACTIONS (5)
  - Medication residue present [Not Recovered/Not Resolved]
  - Nausea [Not Recovered/Not Resolved]
  - Abdominal pain [Not Recovered/Not Resolved]
  - Vomiting [Not Recovered/Not Resolved]
  - Drug ineffective [Not Recovered/Not Resolved]
